FAERS Safety Report 7469400-X (Version None)
Quarter: 2011Q2

REPORT INFORMATION
  Report Type: 
  Country: None (occurrence: None)
  Receive Date: 20110510
  Receipt Date: 20110503
  Transmission Date: 20111010
  Serious: Yes (Disabling, Other)
  Sender: FDA-Public Use
  Company Number: US-PFIZER INC-2011095571

PATIENT
  Sex: Male
  Weight: 105.22 kg

DRUGS (4)
  1. XANAX [Suspect]
     Indication: PANIC ATTACK
     Dosage: 37.5 MG, 4X/DAY
     Route: 048
     Dates: start: 19920101, end: 19990801
  2. ZOLOFT [Suspect]
     Indication: DRUG WITHDRAWAL SYNDROME
     Dosage: 50 MG, 2X/DAY
     Dates: start: 19990901, end: 19990901
  3. DITROPAN [Suspect]
     Indication: MICTURITION DISORDER
     Dosage: 10 MG, UNK
  4. EFFEXOR XR [Suspect]
     Indication: PANIC ATTACK
     Dosage: 75 MG, 3X/DAY
     Route: 048
     Dates: start: 20000101

REACTIONS (14)
  - DRUG WITHDRAWAL SYNDROME [None]
  - PANIC ATTACK [None]
  - MIGRAINE [None]
  - POLLAKIURIA [None]
  - DRUG INEFFECTIVE [None]
  - BIPOLAR DISORDER [None]
  - FEELING ABNORMAL [None]
  - DECREASED APPETITE [None]
  - INFREQUENT BOWEL MOVEMENTS [None]
  - ATTENTION DEFICIT/HYPERACTIVITY DISORDER [None]
  - FREQUENT BOWEL MOVEMENTS [None]
  - INSOMNIA [None]
  - DYSURIA [None]
  - ADRENAL DISORDER [None]
